FAERS Safety Report 7491338-2 (Version None)
Quarter: 2011Q2

REPORT INFORMATION
  Report Type: 
  Country: None (occurrence: None)
  Receive Date: 20110518
  Receipt Date: 20110518
  Transmission Date: 20111010
  Serious: No
  Sender: FDA-Public Use
  Company Number: None

PATIENT
  Age: 67 Year
  Sex: Male
  Weight: 61.2356 kg

DRUGS (2)
  1. ZYCLARA [Suspect]
     Indication: PRECANCEROUS SKIN LESION
     Dosage: ONE APPLIC. DAILY 14 DAYS TOP
     Route: 061
     Dates: start: 20110408, end: 20110417
  2. ZYCLARA [Suspect]
     Indication: SKIN LESION EXCISION
     Dosage: ONE APPLIC. DAILY 14 DAYS TOP
     Route: 061
     Dates: start: 20110408, end: 20110417

REACTIONS (7)
  - ASTHENIA [None]
  - IMMUNE SYSTEM DISORDER [None]
  - DYSGEUSIA [None]
  - HEADACHE [None]
  - FATIGUE [None]
  - LIVER DISORDER [None]
  - BLOOD COUNT ABNORMAL [None]
